FAERS Safety Report 22033980 (Version 2)
Quarter: 2023Q1

REPORT INFORMATION
  Report Type: Other
  Country: CA (occurrence: CA)
  Receive Date: 20230224
  Receipt Date: 20230322
  Transmission Date: 20230417
  Serious: Yes (Death, Life-Threatening, Hospitalization, Other)
  Sender: FDA-Public Use
  Company Number: CA-LUPIN PHARMACEUTICALS INC.-2023-01543

PATIENT
  Age: 39 Year
  Sex: Male

DRUGS (2)
  1. CEPHALEXIN [Suspect]
     Active Substance: CEPHALEXIN
     Indication: Cellulitis
     Dosage: 500 MG, QID
     Route: 065
  2. CEPHALEXIN [Suspect]
     Active Substance: CEPHALEXIN
     Dosage: 500 MG, QID
     Route: 065

REACTIONS (11)
  - Acute kidney injury [Fatal]
  - Hepatic failure [Fatal]
  - Portal hypertension [Fatal]
  - Hepatomegaly [Fatal]
  - Jaundice [Fatal]
  - Liver function test abnormal [Fatal]
  - Oedema peripheral [Fatal]
  - Splenomegaly [Fatal]
  - Mechanical ventilation [Fatal]
  - Intensive care [Fatal]
  - Hepatic steatosis [Fatal]
